FAERS Safety Report 6234269-8 (Version None)
Quarter: 2009Q2

REPORT INFORMATION
  Report Type: 
  Country: None (occurrence: None)
  Receive Date: 20090618
  Receipt Date: 20090608
  Transmission Date: 20091009
  Serious: Yes (Other)
  Sender: FDA-Public Use
  Company Number: CA-PURDUE-USA-2009-0038621

PATIENT
  Sex: Female

DRUGS (4)
  1. RYZOLT [Suspect]
     Indication: DRUG USE FOR UNKNOWN INDICATION
     Dosage: UNK
     Route: 048
     Dates: start: 20090224, end: 20090224
  2. LYRICA [Concomitant]
  3. MOBICOX [Concomitant]
  4. NORTRIPTYLINE HCL [Concomitant]

REACTIONS (4)
  - DIZZINESS [None]
  - PRURITUS [None]
  - RASH [None]
  - VOMITING [None]
